FAERS Safety Report 24419084 (Version 2)
Quarter: 2024Q4

REPORT INFORMATION
  Report Type: Spontaneous
  Country: CN (occurrence: CN)
  Receive Date: 20241009
  Receipt Date: 20241018
  Transmission Date: 20250115
  Serious: No
  Sender: ROCHE
  Company Number: CN-BoehringerIngelheim-2023-BI-279506

PATIENT
  Age: 36 Year
  Sex: Female

DRUGS (4)
  1. ALTEPLASE [Suspect]
     Active Substance: ALTEPLASE
     Indication: Pulmonary embolism
     Route: 042
  2. CEFTRIAXONE [Suspect]
     Active Substance: CEFTRIAXONE
     Indication: Antibiotic therapy
     Route: 065
  3. HEPARIN [Concomitant]
     Active Substance: HEPARIN SODIUM
     Indication: Anticoagulant therapy
  4. RIVAROXABAN [Concomitant]
     Active Substance: RIVAROXABAN

REACTIONS (2)
  - Maternal exposure during pregnancy [Unknown]
  - No adverse event [Unknown]
